FAERS Safety Report 15656343 (Version 1)
Quarter: 2018Q4

REPORT INFORMATION
  Report Type: Spontaneous
  Country: ZA (occurrence: ZA)
  Receive Date: 20181126
  Receipt Date: 20181126
  Transmission Date: 20190205
  Serious: Yes (Hospitalization)
  Sender: FDA-Public Use
  Company Number: ZA-PFIZER INC-2018481486

PATIENT
  Age: 66 Year
  Sex: Female

DRUGS (11)
  1. SPIRACTIN (SPIRONOLACTONE) [Suspect]
     Active Substance: SPIRONOLACTONE
     Dosage: 25 MG, UNK
  2. GLUCOPHAGE [Suspect]
     Active Substance: METFORMIN HYDROCHLORIDE
     Dosage: 1000 MG, UNK
  3. DORMONOCT [Suspect]
     Active Substance: LOPRAZOLAM
     Dosage: 2 MG, UNK
  4. OPTISULIN [INSULIN GLARGINE] [Suspect]
     Active Substance: INSULIN GLARGINE
     Dosage: 100 IU, UNK
  5. MYSOLINE [Suspect]
     Active Substance: PRIMIDONE
     Dosage: 250 MG, UNK
  6. PURESIS [Suspect]
     Active Substance: FUROSEMIDE
     Dosage: 40 MG, UNK
  7. LOMANOR [Suspect]
     Active Substance: AMLODIPINE BESYLATE
     Dosage: 10 MG, UNK
  8. CYNT (MOXONIDINE) [Suspect]
     Active Substance: MOXONIDINE
     Dosage: 0.4 MG, UNK
  9. STUGERON [Suspect]
     Active Substance: CINNARIZINE
     Dosage: 25 MG, UNK
  10. SIMVACOR [Suspect]
     Active Substance: SIMVASTATIN
     Dosage: 40 MG, UNK
  11. MYLACAND PLUS [Suspect]
     Active Substance: CANDESARTAN CILEXETIL\HYDROCHLOROTHIAZIDE
     Dosage: 16/12.5 MG

REACTIONS (2)
  - Tendon rupture [Recovering/Resolving]
  - Wound [Recovering/Resolving]
